FAERS Safety Report 16288140 (Version 1)
Quarter: 2019Q2

REPORT INFORMATION
  Report Type: Spontaneous
  Country: CN (occurrence: CN)
  Receive Date: 20190508
  Receipt Date: 20190508
  Transmission Date: 20190711
  Serious: Yes (Other)
  Sender: FDA-Public Use
  Company Number: PHHY2019CN104293

PATIENT
  Age: 57 Year
  Sex: Male

DRUGS (1)
  1. ZYKADIA [Suspect]
     Active Substance: CERITINIB
     Indication: PRODUCT USED FOR UNKNOWN INDICATION
     Dosage: UNK
     Route: 048

REACTIONS (6)
  - Rash erythematous [Unknown]
  - Abdominal discomfort [Unknown]
  - Decreased appetite [Unknown]
  - Chapped lips [Unknown]
  - Skin exfoliation [Unknown]
  - Cachexia [Unknown]

NARRATIVE: CASE EVENT DATE: 20190501
